FAERS Safety Report 19607159 (Version 1)
Quarter: 2021Q3

REPORT INFORMATION
  Report Type: Spontaneous
  Country: JP (occurrence: JP)
  Receive Date: 20210726
  Receipt Date: 20210726
  Transmission Date: 20211014
  Serious: Yes (Death, Hospitalization, Other)
  Sender: FDA-Public Use
  Company Number: JP-SUN PHARMACEUTICAL INDUSTRIES LTD-2021RR-305414

PATIENT
  Age: 69 Year
  Sex: Male

DRUGS (3)
  1. RIVAROXABAN [Suspect]
     Active Substance: RIVAROXABAN
     Indication: PERICARDITIS
     Dosage: 15 MILLIGRAM, DAILY
     Route: 065
  2. ASPIRIN. [Suspect]
     Active Substance: ASPIRIN
     Indication: PERICARDITIS
     Dosage: 750 MILLIGRAM, TID
  3. COLCHICINE. [Concomitant]
     Active Substance: COLCHICINE
     Indication: PERICARDITIS
     Dosage: 0.5 MILLIGRAM, DAILY, UNK

REACTIONS (5)
  - Drug ineffective [Unknown]
  - Cardiogenic shock [Fatal]
  - Chest discomfort [Unknown]
  - Atrial fibrillation [Unknown]
  - Cardiac tamponade [Unknown]
